FAERS Safety Report 8532762 (Version 3)
Quarter: 2013Q3

REPORT INFORMATION
  Report Type: Spontaneous
  Country: FR (occurrence: FR)
  Receive Date: 20120426
  Receipt Date: 20130905
  Transmission Date: 20140515
  Serious: Yes (Other)
  Sender: FDA-Public Use
  Company Number: FR-ROCHE-1061085

PATIENT
  Age: 69 Year
  Sex: Male

DRUGS (12)
  1. MABTHERA [Suspect]
     Indication: PROPHYLAXIS AGAINST TRANSPLANT REJECTION
     Route: 065
  2. CELLCEPT [Suspect]
     Indication: PRODUCT USED FOR UNKNOWN INDICATION
     Route: 065
     Dates: start: 20110227
  3. CORTANCYL [Suspect]
     Indication: PRODUCT USED FOR UNKNOWN INDICATION
     Route: 065
     Dates: start: 20110304, end: 20120309
  4. CORTANCYL [Suspect]
     Route: 065
     Dates: start: 20120310, end: 20120323
  5. SOLU-MEDROL [Suspect]
     Indication: PRODUCT USED FOR UNKNOWN INDICATION
     Route: 065
     Dates: start: 20110227
  6. SOLU-MEDROL [Suspect]
     Route: 065
     Dates: start: 20120228
  7. SOLU-MEDROL [Suspect]
     Route: 065
     Dates: start: 20120301, end: 20120303
  8. BURINEX [Suspect]
     Indication: PRODUCT USED FOR UNKNOWN INDICATION
     Route: 042
     Dates: start: 20110228, end: 20120306
  9. PROGRAF [Suspect]
     Indication: PRODUCT USED FOR UNKNOWN INDICATION
     Route: 065
     Dates: start: 20110227
  10. ROSUVASTATIN [Concomitant]
     Route: 065
  11. IRBESARTAN [Concomitant]
     Route: 065
  12. FLIXOTIDE 250 [Concomitant]
     Dosage: 1 PUFF TWICE DAILY
     Route: 065

REACTIONS (1)
  - Diabetes mellitus [Unknown]
